FAERS Safety Report 9556271 (Version 3)
Quarter: 2013Q4

REPORT INFORMATION
  Report Type: Report from Study
  Country: HU (occurrence: HU)
  Receive Date: 20130926
  Receipt Date: 20131007
  Transmission Date: 20140711
  Serious: Yes (Hospitalization)
  Sender: FDA-Public Use
  Company Number: PHHO2013HU008400

PATIENT
  Sex: 0

DRUGS (2)
  1. AFINITOR [Suspect]
     Indication: BREAST CANCER METASTATIC
     Dosage: 10 MG, UNK
     Route: 048
     Dates: start: 20130423, end: 20130620
  2. EXEMESTANE [Suspect]
     Indication: BREAST CANCER METASTATIC
     Dosage: 25 MG, UNK
     Route: 048
     Dates: start: 20130423, end: 20130620

REACTIONS (5)
  - Lymphangiosis carcinomatosa [Not Recovered/Not Resolved]
  - Subileus [Not Recovered/Not Resolved]
  - Peritonitis [Not Recovered/Not Resolved]
  - Malignant ascites [Not Recovered/Not Resolved]
  - Clostridium difficile infection [Recovered/Resolved]
